FAERS Safety Report 23142893 (Version 1)
Quarter: 2023Q4

REPORT INFORMATION
  Report Type: Spontaneous
  Country: US (occurrence: None)
  Receive Date: 20231102
  Receipt Date: 20231102
  Transmission Date: 20240109
  Serious: No
  Sender: FDA-Public Use
  Company Number: None

PATIENT
  Age: 50 Year
  Sex: Female

DRUGS (9)
  1. AMBRISENTAN [Suspect]
     Active Substance: AMBRISENTAN
     Indication: Pulmonary hypertension
     Dosage: FREQUENCY : DAILY;?
     Route: 054
     Dates: start: 20220408
  2. POTASSIUM [Concomitant]
     Active Substance: POTASSIUM
  3. GABAPENTIN [Concomitant]
     Active Substance: GABAPENTIN
  4. HYDROCHOLOTHIAZIDE [Concomitant]
  5. LOSARTAN [Concomitant]
  6. ATORVASTIN [Concomitant]
  7. METOPROLOL [Concomitant]
     Active Substance: METOPROLOL
  8. LASIX [Concomitant]
  9. SILDENAFIL [Concomitant]

REACTIONS (3)
  - Drug monitoring procedure not performed [None]
  - Product communication issue [None]
  - Product use issue [None]

NARRATIVE: CASE EVENT DATE: 20231102
